FAERS Safety Report 20307684 (Version 1)
Quarter: 2022Q1

REPORT INFORMATION
  Report Type: Spontaneous
  Country: DE (occurrence: DE)
  Receive Date: 20220107
  Receipt Date: 20220107
  Transmission Date: 20220423
  Serious: Yes (Other)
  Sender: FDA-Public Use
  Company Number: DE-002147023-NVSC2021DE284042

PATIENT
  Age: 62 Year
  Sex: Male

DRUGS (5)
  1. POSACONAZOLE [Suspect]
     Active Substance: POSACONAZOLE
     Indication: Antifungal prophylaxis
     Dosage: UNK
     Route: 065
  2. POSACONAZOLE [Suspect]
     Active Substance: POSACONAZOLE
     Indication: Acute graft versus host disease
  3. RUXOLITINIB [Suspect]
     Active Substance: RUXOLITINIB
     Indication: Acute graft versus host disease
     Dosage: 20 MILLIGRAM (2 X10 MG)
     Route: 065
  4. PREDNISOLONE [Suspect]
     Active Substance: PREDNISOLONE
     Indication: Acute graft versus host disease
     Dosage: 1 MILLIGRAM/KILOGRAM
     Route: 065
  5. PREDNISOLONE [Suspect]
     Active Substance: PREDNISOLONE
     Dosage: 2 MILLIGRAM/KILOGRAM
     Route: 042

REACTIONS (8)
  - Blood alkaline phosphatase increased [Recovering/Resolving]
  - Seizure [Unknown]
  - Blood bilirubin increased [Recovering/Resolving]
  - Product use in unapproved indication [Unknown]
  - Gamma-glutamyltransferase increased [Recovering/Resolving]
  - Nocardiosis [Unknown]
  - Diarrhoea [Recovering/Resolving]
  - Colitis [Unknown]
